FAERS Safety Report 4447812-6 (Version None)
Quarter: 2004Q3

REPORT INFORMATION
  Report Type: 
  Country: None (occurrence: None)
  Receive Date: 20040913
  Receipt Date: 20040715
  Transmission Date: 20050211
  Serious: Yes (Death, Hospitalization)
  Sender: FDA-Public Use
  Company Number: US-AMGEN-US083731

PATIENT
  Sex: Male

DRUGS (4)
  1. ENBREL [Suspect]
     Indication: RHEUMATOID ARTHRITIS
     Route: 058
     Dates: start: 20011001, end: 20040614
  2. METHOTREXATE [Concomitant]
  3. ULTRACET [Concomitant]
     Dates: end: 20040701
  4. ACIPHEX [Concomitant]

REACTIONS (7)
  - CHRONIC OBSTRUCTIVE AIRWAYS DISEASE [None]
  - CONDITION AGGRAVATED [None]
  - DEATH [None]
  - DECUBITUS ULCER [None]
  - DEPRESSED LEVEL OF CONSCIOUSNESS [None]
  - FAILURE TO THRIVE [None]
  - PNEUMONIA ASPIRATION [None]
